FAERS Safety Report 17014481 (Version 1)
Quarter: 2019Q4

REPORT INFORMATION
  Report Type: Spontaneous
  Country: US (occurrence: US)
  Receive Date: 20191111
  Receipt Date: 20191111
  Transmission Date: 20200122
  Serious: Yes (Death, Hospitalization)
  Sender: FDA-Public Use
  Company Number: US-STRIDES ARCOLAB LIMITED-2019SP011266

PATIENT
  Age: 53 Year
  Sex: Male

DRUGS (5)
  1. PREDNISOLONE. [Suspect]
     Active Substance: PREDNISOLONE
     Indication: IMMUNOSUPPRESSANT DRUG THERAPY
     Dosage: UNK
     Route: 065
  2. PREDNISOLONE. [Suspect]
     Active Substance: PREDNISOLONE
     Indication: LIVER TRANSPLANT
  3. TACROLIMUS. [Suspect]
     Active Substance: TACROLIMUS
     Indication: IMMUNOSUPPRESSANT DRUG THERAPY
     Dosage: UNK
     Route: 065
  4. TACROLIMUS. [Suspect]
     Active Substance: TACROLIMUS
     Indication: LIVER TRANSPLANT
  5. BALSALAZIDE [Concomitant]
     Active Substance: BALSALAZIDE
     Indication: COLITIS ULCERATIVE
     Dosage: UNK
     Route: 065

REACTIONS (21)
  - Encephalopathy [Unknown]
  - Ileus [Unknown]
  - Enterococcal infection [Unknown]
  - Bacteraemia [Unknown]
  - Abdominal pain upper [Unknown]
  - Colitis [Unknown]
  - Urticaria [Unknown]
  - Cardiac arrest [Fatal]
  - Respiratory failure [Fatal]
  - Renal failure [Unknown]
  - Nuchal rigidity [Unknown]
  - Disseminated intravascular coagulation [Unknown]
  - Pyrexia [Unknown]
  - Diarrhoea [Unknown]
  - Rash erythematous [Unknown]
  - Rash vesicular [Unknown]
  - Chest pain [Unknown]
  - Varicella zoster virus infection [Fatal]
  - Abdominal rigidity [Unknown]
  - Haematochezia [Unknown]
  - Acidosis [Unknown]
